FAERS Safety Report 4287008-4 (Version None)
Quarter: 2004Q1

REPORT INFORMATION
  Report Type: 
  Country: None (occurrence: None)
  Receive Date: 20040205
  Receipt Date: 20040127
  Transmission Date: 20041129
  Serious: Yes (Hospitalization, Other)
  Sender: FDA-Public Use
  Company Number: USA-2003-0005819

PATIENT
  Sex: Male
  Weight: 68 kg

DRUGS (14)
  1. OXYCONTIN [Suspect]
     Indication: PAIN
     Dosage: 20 MG
     Dates: start: 20000401
  2. HYTRIN [Concomitant]
  3. CELEBREX [Concomitant]
  4. SKELAXIN [Concomitant]
  5. VIOXX [Concomitant]
  6. PROZAC [Concomitant]
  7. DEMEROL [Concomitant]
  8. TRAZODONE HCL [Concomitant]
  9. CARISOPRODOL [Concomitant]
  10. NAPROXEN [Concomitant]
  11. MIDRIN (ISOMETHEPTENE, DICHLORALPHENAZONE) [Concomitant]
  12. INDERAL [Concomitant]
  13. KLONOPIN [Concomitant]
  14. NORCO [Concomitant]

REACTIONS (15)
  - ANXIETY [None]
  - APPENDICITIS [None]
  - BRONCHITIS [None]
  - DEPRESSION SUICIDAL [None]
  - DIARRHOEA [None]
  - DRUG ABUSER [None]
  - DRUG DEPENDENCE [None]
  - DRUG SCREEN POSITIVE [None]
  - DRUG WITHDRAWAL CONVULSIONS [None]
  - DRUG WITHDRAWAL SYNDROME [None]
  - PAIN [None]
  - PANIC ATTACK [None]
  - SINUSITIS [None]
  - SOMATIC DELUSION [None]
  - SUICIDAL IDEATION [None]
